FAERS Safety Report 5168446-4 (Version None)
Quarter: 2006Q4

REPORT INFORMATION
  Report Type: 
  Country: None (occurrence: None)
  Receive Date: 20061208
  Receipt Date: 20061128
  Transmission Date: 20070319
  Serious: Yes (Other)
  Sender: FDA-Public Use
  Company Number: CA-ROCHE-472760

PATIENT
  Age: 91 Year
  Sex: Female

DRUGS (15)
  1. TAMIFLU [Suspect]
     Indication: DRUG USE FOR UNKNOWN INDICATION
     Route: 048
  2. BIAXIN [Suspect]
     Indication: DRUG USE FOR UNKNOWN INDICATION
     Route: 048
  3. FERROUS GLUCONATE [Concomitant]
     Route: 048
  4. CAPTOPRIL [Concomitant]
  5. DIDROCAL [Concomitant]
     Route: 048
  6. NITROLINGUAL [Concomitant]
     Route: 060
  7. SERAX [Concomitant]
  8. DOCUSATE [Concomitant]
     Route: 048
  9. LASIX [Concomitant]
     Route: 048
  10. PANTOPRAZOLE SODIUM [Concomitant]
  11. GRAVOL TAB [Concomitant]
     Route: 042
  12. COUMADIN [Concomitant]
  13. MORPHINE [Concomitant]
     Route: 058
  14. FLAGYL [Concomitant]
     Route: 042
  15. CIPRO [Concomitant]
     Route: 042

REACTIONS (5)
  - CONSTIPATION [None]
  - HAEMATOMA [None]
  - INTESTINAL OBSTRUCTION [None]
  - PAIN [None]
  - PROTHROMBIN TIME PROLONGED [None]
